FAERS Safety Report 10208840 (Version 2)
Quarter: 2014Q2

REPORT INFORMATION
  Report Type: Spontaneous
  Country: US (occurrence: US)
  Receive Date: 20140530
  Receipt Date: 20140530
  Transmission Date: 20141212
  Serious: No
  Sender: FDA-Public Use
  Company Number: US-009507513-1401USA002002

PATIENT
  Age: 84 Year
  Sex: Male
  Weight: 80.73 kg

DRUGS (7)
  1. MIRALAX [Suspect]
     Indication: BLADDER DISORDER
     Dosage: 17 G, QD
     Route: 048
     Dates: start: 201311, end: 201403
  2. MIRALAX [Suspect]
     Indication: FAECES HARD
     Dosage: 17 G, QD
     Route: 048
     Dates: start: 201302, end: 201309
  3. MIRALAX [Suspect]
     Indication: CONSTIPATION
  4. GLIPIZIDE [Concomitant]
     Indication: PRODUCT USED FOR UNKNOWN INDICATION
     Dosage: 5 MG, QD
  5. LOVASTATIN [Concomitant]
     Indication: PRODUCT USED FOR UNKNOWN INDICATION
     Dosage: UNK, UNKNOWN
  6. FLOMAX (MORNIFLUMATE) [Concomitant]
     Indication: PRODUCT USED FOR UNKNOWN INDICATION
     Dosage: UNK, QD
  7. VSL NO 3 [Concomitant]
     Indication: PRODUCT USED FOR UNKNOWN INDICATION
     Dosage: 2 DF, QD

REACTIONS (3)
  - Incorrect drug administration duration [Unknown]
  - Off label use [Unknown]
  - Drug ineffective [Unknown]
